FAERS Safety Report 17287627 (Version 2)
Quarter: 2025Q1

REPORT INFORMATION
  Report Type: Spontaneous
  Country: DK (occurrence: DK)
  Receive Date: 20200120
  Receipt Date: 20250213
  Transmission Date: 20250409
  Serious: Yes (Congenital Anomaly, Other)
  Sender: TEVA
  Company Number: None

PATIENT

DRUGS (1)
  1. VENLAFAXINE [Suspect]
     Active Substance: VENLAFAXINE HYDROCHLORIDE
     Indication: Anxiety
     Route: 064
     Dates: start: 20180522

REACTIONS (4)
  - Congenital central nervous system anomaly [Recovered/Resolved]
  - Neuronal migration disorder [Recovered/Resolved]
  - Megalencephaly [Recovered/Resolved]
  - Foetal exposure during pregnancy [Recovered/Resolved]

NARRATIVE: CASE EVENT DATE: 20181204
